FAERS Safety Report 9648113 (Version 1)
Quarter: 2013Q4

REPORT INFORMATION
  Report Type: Spontaneous
  Country: DE (occurrence: DE)
  Receive Date: 20131028
  Receipt Date: 20131028
  Transmission Date: 20140711
  Serious: Yes (Other)
  Sender: FDA-Public Use
  Company Number: PHHY2013DE121153

PATIENT
  Sex: Female

DRUGS (3)
  1. GILENYA [Suspect]
     Dosage: 0.5 MG, UNK
     Route: 048
     Dates: start: 2011
  2. GILENYA [Suspect]
     Dosage: 0.5 MG, UNK
     Route: 048
  3. GILENYA [Suspect]
     Dosage: 0.5 MG, UNK
     Route: 048
     Dates: start: 201310

REACTIONS (2)
  - Thrombocytopenia [Not Recovered/Not Resolved]
  - Lymphocyte count decreased [Recovering/Resolving]
